FAERS Safety Report 5520311-6 (Version None)
Quarter: 2007Q4

REPORT INFORMATION
  Report Type: 
  Country: None (occurrence: None)
  Receive Date: 20071115
  Receipt Date: 20071115
  Transmission Date: 20080405
  Serious: Yes (Other)
  Sender: FDA-Public Use
  Company Number: None

PATIENT
  Sex: Male
  Weight: 131.5431 kg

DRUGS (2)
  1. HUMALOG [Suspect]
     Indication: DIABETES MELLITUS
     Dosage: UNITS AS NEEDED CONTINUAL INSULIN PUMP
     Dates: start: 20040101
  2. HUMULIN U [Suspect]
     Dosage: UNITS AS NEEDED CONTINUAL INSULIN PUMP
     Dates: start: 20040101

REACTIONS (2)
  - DEVICE MALFUNCTION [None]
  - PHARMACEUTICAL PRODUCT COMPLAINT [None]
